FAERS Safety Report 9383809 (Version 3)
Quarter: 2013Q3

REPORT INFORMATION
  Report Type: Report from Study
  Country: US (occurrence: US)
  Receive Date: 20130704
  Receipt Date: 20130823
  Transmission Date: 20140515
  Serious: Yes (Hospitalization)
  Sender: FDA-Public Use
  Company Number: US-BRISTOL-MYERS SQUIBB COMPANY-19047638

PATIENT
  Age: 75 Year
  Sex: Male
  Weight: 103.3 kg

DRUGS (1)
  1. IPILIMUMAB [Suspect]
     Indication: MALIGNANT MELANOMA
     Dosage: TOTAL:1050 MG. ?NO OF COURSE : 2?LAST DOSE:10JUN13,22JUL13
     Route: 042
     Dates: start: 20130520

REACTIONS (5)
  - Skin infection [Recovering/Resolving]
  - Muscular weakness [Recovering/Resolving]
  - Dehydration [Recovering/Resolving]
  - Hyponatraemia [Recovering/Resolving]
  - Pyrexia [Recovering/Resolving]
